FAERS Safety Report 6658141-4 (Version None)
Quarter: 2010Q1

REPORT INFORMATION
  Report Type: 
  Country: None (occurrence: None)
  Receive Date: 20100330
  Receipt Date: 20100325
  Transmission Date: 20100710
  Serious: Yes (Hospitalization)
  Sender: FDA-Public Use
  Company Number: A0813836A

PATIENT
  Age: 62 Year
  Sex: Male

DRUGS (13)
  1. AVANDIA [Suspect]
     Indication: DIABETES MELLITUS
     Dosage: 8MG PER DAY
     Route: 048
     Dates: start: 20010101, end: 20070910
  2. DIOVAN HCT [Concomitant]
  3. GLUCOPHAGE [Concomitant]
  4. LOPRESSOR [Concomitant]
  5. FLOMAX [Concomitant]
  6. PAXIL [Concomitant]
  7. TOPROL-XL [Concomitant]
  8. ZANTAC [Concomitant]
  9. PRAVACHOL [Concomitant]
  10. INSULIN [Concomitant]
  11. PLENDIL [Concomitant]
  12. GLUCOVANCE [Concomitant]
  13. KLOR-CON [Concomitant]

REACTIONS (5)
  - ANXIETY [None]
  - CEREBROVASCULAR ACCIDENT [None]
  - DEPRESSION [None]
  - MYOCARDIAL INFARCTION [None]
  - TRANSIENT ISCHAEMIC ATTACK [None]
